FAERS Safety Report 7733951-0 (Version None)
Quarter: 2011Q3

REPORT INFORMATION
  Report Type: 
  Country: None (occurrence: None)
  Receive Date: 20110907
  Receipt Date: 20101111
  Transmission Date: 20111222
  Serious: No
  Sender: FDA-Public Use
  Company Number: US-MUTUAL PHARMACEUTICAL COMPANY, INC.-2010P1002543

PATIENT
  Sex: Female
  Weight: 49.44 kg

DRUGS (1)
  1. SULFAMETHOXAZOLE AND TRIMETHOPRIM [Suspect]
     Indication: SINUSITIS
     Route: 048
     Dates: start: 20101025, end: 20101104

REACTIONS (2)
  - OROPHARYNGEAL DISCOMFORT [None]
  - RASH MACULO-PAPULAR [None]
